FAERS Safety Report 9025223 (Version 16)
Quarter: 2020Q2

REPORT INFORMATION
  Report Type: Report from Study
  Country: CA (occurrence: CA)
  Receive Date: 20130122
  Receipt Date: 20200603
  Transmission Date: 20200714
  Serious: Yes (Hospitalization, Other)
  Sender: FDA-Public Use
  Company Number: CA-ROCHE-CID000000002221870

PATIENT
  Age: 20 Year
  Sex: Female
  Weight: 48 kg

DRUGS (9)
  1. NAPROXEN. [Concomitant]
     Active Substance: NAPROXEN
  2. ACTEMRA [Suspect]
     Active Substance: TOCILIZUMAB
     Route: 042
     Dates: start: 20141110
  3. DICLOFENAC [Concomitant]
     Active Substance: DICLOFENAC
  4. ACTEMRA [Suspect]
     Active Substance: TOCILIZUMAB
     Route: 042
     Dates: start: 20200302
  5. ACTEMRA [Suspect]
     Active Substance: TOCILIZUMAB
     Route: 042
     Dates: start: 20141210
  6. ARAVA [Concomitant]
     Active Substance: LEFLUNOMIDE
  7. LEFLUNOMIDE. [Concomitant]
     Active Substance: LEFLUNOMIDE
  8. ACTEMRA [Suspect]
     Active Substance: TOCILIZUMAB
     Indication: JUVENILE IDIOPATHIC ARTHRITIS
     Route: 042
     Dates: start: 20120405, end: 20130107
  9. ACTEMRA [Suspect]
     Active Substance: TOCILIZUMAB
     Route: 042
     Dates: start: 20120530, end: 201510

REACTIONS (18)
  - Arthropathy [Unknown]
  - Tooth disorder [Unknown]
  - Musculoskeletal pain [Unknown]
  - Food poisoning [Recovered/Resolved]
  - Complication associated with device [Unknown]
  - Gastroenteritis viral [Recovered/Resolved]
  - Peripheral swelling [Unknown]
  - Joint swelling [Unknown]
  - Limb injury [Unknown]
  - Urinary tract infection [Recovered/Resolved]
  - Dehydration [Unknown]
  - Accident [Unknown]
  - Cough [Unknown]
  - Heart rate increased [Unknown]
  - Nasopharyngitis [Recovered/Resolved]
  - Depression [Recovered/Resolved]
  - Hypotension [Not Recovered/Not Resolved]
  - Oxygen saturation decreased [Unknown]

NARRATIVE: CASE EVENT DATE: 20121024
